FAERS Safety Report 15775056 (Version 3)
Quarter: 2019Q1

REPORT INFORMATION
  Report Type: Report from Study
  Country: None (occurrence: US)
  Receive Date: 20181231
  Receipt Date: 20190208
  Transmission Date: 20190417
  Serious: Yes (Other)
  Sender: FDA-Public Use
  Company Number: US-ABBVIE-18K-163-2604435-00

PATIENT
  Age: 50 Year
  Sex: Male
  Weight: 73.09 kg

DRUGS (9)
  1. IBUPROFEN. [Concomitant]
     Active Substance: IBUPROFEN
     Indication: HEADACHE
  2. TROKENDI [Concomitant]
     Active Substance: TOPIRAMATE
     Indication: SEIZURE
  3. LOSARTAN. [Concomitant]
     Active Substance: LOSARTAN
     Indication: HYPERTENSION
  4. HUMIRA [Suspect]
     Active Substance: ADALIMUMAB
     Indication: ANKYLOSING SPONDYLITIS
     Route: 058
     Dates: start: 2017
  5. ONFI [Concomitant]
     Active Substance: CLOBAZAM
     Indication: SEIZURE
  6. XANAX [Concomitant]
     Active Substance: ALPRAZOLAM
     Indication: ANXIETY
  7. DEPAKOTE [Concomitant]
     Active Substance: DIVALPROEX SODIUM
     Indication: SEIZURE
  8. CARBATROL [Concomitant]
     Active Substance: CARBAMAZEPINE
     Indication: SEIZURE
  9. METOPROLOL. [Concomitant]
     Active Substance: METOPROLOL
     Indication: HYPERTENSION

REACTIONS (8)
  - Partial seizures [Recovering/Resolving]
  - Arthralgia [Unknown]
  - Nasopharyngitis [Unknown]
  - Back injury [Unknown]
  - Heart rate decreased [Recovered/Resolved]
  - Road traffic accident [Recovered/Resolved]
  - Weight decreased [Recovered/Resolved]
  - Migraine [Unknown]

NARRATIVE: CASE EVENT DATE: 2017
